FAERS Safety Report 6619645-3 (Version None)
Quarter: 2010Q1

REPORT INFORMATION
  Report Type: 
  Country: None (occurrence: None)
  Receive Date: 20100309
  Receipt Date: 20100226
  Transmission Date: 20100710
  Serious: Yes (Hospitalization)
  Sender: FDA-Public Use
  Company Number: US-JNJFOC-20100201178

PATIENT
  Age: 53 Year
  Sex: Female
  Weight: 61.24 kg

DRUGS (5)
  1. EXTRA STRENGTH TYLENOL [Suspect]
     Route: 048
  2. EXTRA STRENGTH TYLENOL [Suspect]
     Indication: PAIN
     Route: 048
  3. ADVAIR DISKUS 100/50 [Concomitant]
     Route: 055
  4. SINGULAIR [Concomitant]
  5. VAGIFEM [Concomitant]
     Dosage: 2-3 TIMES/WEEK

REACTIONS (2)
  - ABDOMINAL PAIN [None]
  - PRODUCT QUALITY ISSUE [None]
